FAERS Safety Report 10176376 (Version 3)
Quarter: 2015Q1

REPORT INFORMATION
  Report Type: Spontaneous
  Country: PL (occurrence: None)
  Receive Date: 20140514
  Receipt Date: 20150219
  Transmission Date: 20150720
  Serious: Yes (Death, Life-Threatening)
  Sender: FDA-Public Use
  Company Number: PL-2014-1735

PATIENT
  Age: 59 Year
  Sex: Female
  Weight: 58 kg

DRUGS (4)
  1. NAVELBINE [Suspect]
     Active Substance: VINORELBINE TARTRATE
     Indication: NON-SMALL CELL LUNG CANCER
     Route: 042
     Dates: start: 20140415, end: 20140422
  2. CISPLATIN ACCORD (CISPLATIN) UNKNOWN [Suspect]
     Active Substance: CISPLATIN
     Indication: NON-SMALL CELL LUNG CANCER
     Route: 042
     Dates: start: 20140415, end: 20140415
  3. CISPLATIN ACCORD (CISPLATIN) UNKNOWN [Suspect]
     Active Substance: CISPLATIN
     Indication: LUNG NEOPLASM MALIGNANT
     Route: 042
     Dates: start: 20140415, end: 20140415
  4. NAVELBINE [Suspect]
     Active Substance: VINORELBINE TARTRATE
     Indication: LUNG NEOPLASM MALIGNANT
     Route: 042
     Dates: start: 20140415, end: 20140422

REACTIONS (4)
  - Pancytopenia [None]
  - Vomiting [None]
  - Renal failure [None]
  - Diarrhoea [None]

NARRATIVE: CASE EVENT DATE: 20140427
